FAERS Safety Report 5872752-5 (Version None)
Quarter: 2008Q3

REPORT INFORMATION
  Report Type: 
  Country: None (occurrence: None)
  Receive Date: 20080905
  Receipt Date: 20080825
  Transmission Date: 20090109
  Serious: Yes (Hospitalization)
  Sender: FDA-Public Use
  Company Number: US-BAYER-200816741NA

PATIENT
  Age: 56 Year
  Sex: Female

DRUGS (13)
  1. NEXAVAR [Suspect]
     Indication: RENAL CELL CARCINOMA
     Dosage: TOTAL DAILY DOSE: 800 MG  UNIT DOSE: 200 MG
     Route: 048
     Dates: start: 20080201, end: 20080307
  2. NEXAVAR [Suspect]
     Dosage: TOTAL DAILY DOSE: 800 MG  UNIT DOSE: 200 MG
     Route: 048
     Dates: start: 20080316
  3. ZOMETA [Concomitant]
  4. TRAZODONE HCL [Concomitant]
     Dosage: TOTAL DAILY DOSE: 50 MG
     Route: 048
  5. SIMVASTATIN [Concomitant]
     Dosage: TOTAL DAILY DOSE: 20 MG
     Route: 048
  6. NEURONTIN [Concomitant]
     Dosage: TOTAL DAILY DOSE: 300 MG
     Route: 048
  7. RIFAMPIN [Concomitant]
     Indication: STAPHYLOCOCCAL INFECTION
  8. SENNA-S [Concomitant]
     Route: 048
  9. ZOLOFT [Concomitant]
     Dosage: TOTAL DAILY DOSE: 50 MG
     Route: 048
  10. COUMADIN [Concomitant]
     Dosage: TOTAL DAILY DOSE: 5 MG
  11. OXYCODONE HCL [Concomitant]
     Route: 048
  12. FENTANYL-25 [Concomitant]
     Route: 062
  13. VANCOMYCIN HYDROCHLORIDE [Concomitant]
     Indication: STAPHYLOCOCCAL INFECTION

REACTIONS (5)
  - CHILLS [None]
  - DIARRHOEA [None]
  - KLEBSIELLA BACTERAEMIA [None]
  - PYREXIA [None]
  - VOMITING [None]
